FAERS Safety Report 14713143 (Version 3)
Quarter: 2018Q3

REPORT INFORMATION
  Report Type: Spontaneous
  Country: US (occurrence: US)
  Receive Date: 20180404
  Receipt Date: 20180813
  Transmission Date: 20181010
  Serious: No
  Sender: FDA-Public Use
  Company Number: US-PFIZER INC-2018135793

PATIENT
  Age: 85 Year
  Sex: Female
  Weight: 48.8 kg

DRUGS (30)
  1. NYSTATIN. [Suspect]
     Active Substance: NYSTATIN
     Indication: SWELLING
  2. GOLD BOND ORIGINAL STRENGTH POWDER [Suspect]
     Active Substance: MENTHOL\ZINC OXIDE
     Indication: SWELLING
  3. CETAPHIL [Suspect]
     Active Substance: AVOBENZONE\OCTOCRYLENE\TRICLOSAN
     Indication: SWELLING
  4. ALLEGRA [Concomitant]
     Active Substance: FEXOFENADINE HYDROCHLORIDE
     Indication: ERYTHEMA
  5. BENADRYL [Concomitant]
     Active Substance: DIPHENHYDRAMINE HYDROCHLORIDE
     Indication: PRURITUS
     Dosage: UNK
  6. HYDROCORTISONE ACETATE. [Suspect]
     Active Substance: HYDROCORTISONE ACETATE
     Indication: PAIN
  7. NYSTATIN. [Suspect]
     Active Substance: NYSTATIN
     Indication: PRURITUS
     Dosage: UNK
  8. NYSTATIN. [Suspect]
     Active Substance: NYSTATIN
     Indication: ERYTHEMA
  9. ZEASORB AF [Suspect]
     Active Substance: MICONAZOLE NITRATE
     Indication: PRURITUS
     Dosage: UNK
  10. GOLD BOND ORIGINAL STRENGTH POWDER [Suspect]
     Active Substance: MENTHOL\ZINC OXIDE
     Indication: PRURITUS
     Dosage: UNK
  11. PERMETHRIN. [Suspect]
     Active Substance: PERMETHRIN
     Indication: ERYTHEMA
  12. BENADRYL [Concomitant]
     Active Substance: DIPHENHYDRAMINE HYDROCHLORIDE
     Indication: ERYTHEMA
  13. HYDROCORTISONE ACETATE. [Suspect]
     Active Substance: HYDROCORTISONE ACETATE
     Indication: ERYTHEMA
  14. NYSTATIN. [Suspect]
     Active Substance: NYSTATIN
     Indication: PAIN
  15. ZEASORB AF [Suspect]
     Active Substance: MICONAZOLE NITRATE
     Indication: ERYTHEMA
  16. CETAPHIL [Suspect]
     Active Substance: AVOBENZONE\OCTOCRYLENE\TRICLOSAN
     Indication: ERYTHEMA
  17. PREDNISONE. [Concomitant]
     Active Substance: PREDNISONE
     Dosage: 10 MG, 2X/DAY [FOR 8 DAYS]
  18. GOLD BOND ORIGINAL STRENGTH POWDER [Suspect]
     Active Substance: MENTHOL\ZINC OXIDE
     Indication: ERYTHEMA
  19. GOLD BOND ORIGINAL STRENGTH POWDER [Suspect]
     Active Substance: MENTHOL\ZINC OXIDE
     Indication: PAIN
  20. PERMETHRIN. [Suspect]
     Active Substance: PERMETHRIN
     Indication: ACARODERMATITIS
  21. ALLEGRA [Concomitant]
     Active Substance: FEXOFENADINE HYDROCHLORIDE
     Indication: PRURITUS
     Dosage: UNK
  22. TRIAMCINOLONE ACETONIDE. [Concomitant]
     Active Substance: TRIAMCINOLONE ACETONIDE
     Dosage: UNK
  23. CALAMINE W/PRAMOXINE HYDROCHLORIDE [Concomitant]
     Dosage: UNK
  24. HYDROCORTISONE ACETATE. [Suspect]
     Active Substance: HYDROCORTISONE ACETATE
     Indication: PRURITUS
     Dosage: UNK
  25. HYDROCORTISONE ACETATE. [Suspect]
     Active Substance: HYDROCORTISONE ACETATE
     Indication: SWELLING
  26. ZEASORB AF [Suspect]
     Active Substance: MICONAZOLE NITRATE
     Indication: SWELLING
  27. ZEASORB AF [Suspect]
     Active Substance: MICONAZOLE NITRATE
     Indication: PAIN
  28. PERMETHRIN. [Suspect]
     Active Substance: PERMETHRIN
     Indication: PRURITUS
     Dosage: 60 MG, UNK [3 TIMES 60MG EACH]
  29. CETAPHIL [Suspect]
     Active Substance: AVOBENZONE\OCTOCRYLENE\TRICLOSAN
     Indication: PRURITUS
     Dosage: UNK
  30. CETAPHIL [Suspect]
     Active Substance: AVOBENZONE\OCTOCRYLENE\TRICLOSAN
     Indication: PAIN

REACTIONS (1)
  - Drug ineffective [Unknown]
